FAERS Safety Report 6501607-8 (Version None)
Quarter: 2009Q4

REPORT INFORMATION
  Report Type: 
  Country: None (occurrence: None)
  Receive Date: 20091216
  Receipt Date: 20091210
  Transmission Date: 20100525
  Serious: Yes (Hospitalization)
  Sender: FDA-Public Use
  Company Number: FR-MERCK-0912FRA00002

PATIENT
  Age: 48 Year
  Sex: Male
  Weight: 91 kg

DRUGS (6)
  1. JANUVIA [Suspect]
     Indication: TYPE 2 DIABETES MELLITUS
     Route: 048
     Dates: start: 20090801, end: 20091004
  2. SULFAMETHOXAZOLE AND TRIMETHOPRIM [Suspect]
     Indication: OSTEITIS
     Route: 048
     Dates: start: 20090801, end: 20091006
  3. CIPROFLOXACIN HYDROCHLORIDE [Suspect]
     Indication: OSTEITIS
     Route: 048
     Dates: start: 20090801, end: 20091006
  4. METFORMIN HYDROCHLORIDE [Suspect]
     Indication: TYPE 2 DIABETES MELLITUS
     Route: 065
     Dates: start: 20090801, end: 20091004
  5. LOSARTAN POTASSIUM [Concomitant]
     Route: 065
  6. PERINDOPRIL [Concomitant]
     Route: 065
     Dates: start: 20090801, end: 20091004

REACTIONS (1)
  - RENAL FAILURE ACUTE [None]
